FAERS Safety Report 23567194 (Version 1)
Quarter: 2024Q1

REPORT INFORMATION
  Report Type: Spontaneous
  Country: CN (occurrence: CN)
  Receive Date: 20240226
  Receipt Date: 20240226
  Transmission Date: 20240409
  Serious: Yes (Hospitalization, Other)
  Sender: FDA-Public Use
  Company Number: CN-DSJP-DSJ-2024-108397

PATIENT
  Age: 47 Year
  Sex: Female

DRUGS (4)
  1. TRASTUZUMAB DERUXTECAN [Suspect]
     Active Substance: TRASTUZUMAB DERUXTECAN
     Indication: Ovarian neoplasm
     Dosage: 200 MG, QD
     Route: 041
     Dates: start: 20240201, end: 20240201
  2. TRASTUZUMAB DERUXTECAN [Suspect]
     Active Substance: TRASTUZUMAB DERUXTECAN
     Indication: Neoplasm
  3. SINTILIMAB [Suspect]
     Active Substance: SINTILIMAB
     Indication: Ovarian neoplasm
     Dosage: 200 MG, QD
     Route: 041
     Dates: start: 20240201, end: 20240201
  4. SINTILIMAB [Suspect]
     Active Substance: SINTILIMAB
     Indication: Neoplasm

REACTIONS (4)
  - White blood cell count decreased [Recovered/Resolved]
  - Granulocyte count decreased [Recovered/Resolved]
  - Myelosuppression [Recovered/Resolved]
  - Self-medication [Unknown]

NARRATIVE: CASE EVENT DATE: 20240201
